FAERS Safety Report 5408215-0 (Version None)
Quarter: 2007Q3

REPORT INFORMATION
  Report Type: 
  Country: None (occurrence: None)
  Receive Date: 20070806
  Receipt Date: 20070806
  Transmission Date: 20080115
  Serious: Yes (Hospitalization)
  Sender: FDA-Public Use
  Company Number: None

PATIENT
  Sex: Female
  Weight: 94.35 kg

DRUGS (3)
  1. FLUOROURACIL [Suspect]
     Dosage: 1425 MG
     Dates: end: 20070712
  2. LEUCOVORIN CALCIUM [Suspect]
     Dosage: 850 MG
     Dates: end: 20070711
  3. ELOXATIN [Suspect]
     Dosage: 180 MG
     Dates: end: 20070711

REACTIONS (4)
  - NAUSEA [None]
  - ORAL INTAKE REDUCED [None]
  - PULMONARY EMBOLISM [None]
  - VOMITING [None]
